FAERS Safety Report 24942244 (Version 6)
Quarter: 2025Q4

REPORT INFORMATION
  Report Type: Report from Study
  Country: JP (occurrence: JP)
  Receive Date: 20250207
  Receipt Date: 20251029
  Transmission Date: 20260118
  Serious: Yes (Other)
  Sender: EISAI
  Company Number: JP-Eisai-202411948_LEN-EC_P_1

PATIENT
  Age: 71 Year
  Sex: Female
  Weight: 80 kg

DRUGS (21)
  1. LENVIMA [Suspect]
     Active Substance: LENVATINIB
     Indication: Endometrial cancer
     Route: 048
     Dates: start: 20240509, end: 20240731
  2. LENVIMA [Suspect]
     Active Substance: LENVATINIB
     Route: 048
     Dates: start: 20240816, end: 20241126
  3. LENVIMA [Suspect]
     Active Substance: LENVATINIB
     Route: 048
     Dates: start: 20250120, end: 20250314
  4. LENVIMA [Suspect]
     Active Substance: LENVATINIB
     Route: 048
     Dates: start: 20250403, end: 20250418
  5. LENVIMA [Suspect]
     Active Substance: LENVATINIB
     Route: 048
     Dates: start: 20250510
  6. KEYTRUDA [Concomitant]
     Active Substance: PEMBROLIZUMAB
     Indication: Endometrial cancer
     Route: 042
     Dates: start: 20240509, end: 20240509
  7. KEYTRUDA [Concomitant]
     Active Substance: PEMBROLIZUMAB
     Route: 042
     Dates: start: 20240606, end: 20240606
  8. KEYTRUDA [Concomitant]
     Active Substance: PEMBROLIZUMAB
     Route: 042
     Dates: start: 20240704, end: 20240704
  9. KEYTRUDA [Concomitant]
     Active Substance: PEMBROLIZUMAB
     Route: 042
     Dates: start: 20240816, end: 20240816
  10. KEYTRUDA [Concomitant]
     Active Substance: PEMBROLIZUMAB
     Route: 042
     Dates: start: 20240912, end: 20240912
  11. KEYTRUDA [Concomitant]
     Active Substance: PEMBROLIZUMAB
     Route: 042
     Dates: start: 20241003, end: 20241003
  12. KEYTRUDA [Concomitant]
     Active Substance: PEMBROLIZUMAB
     Route: 042
     Dates: start: 20241031, end: 20241031
  13. KEYTRUDA [Concomitant]
     Active Substance: PEMBROLIZUMAB
     Route: 042
     Dates: start: 20241212
  14. ALLEGRA [Concomitant]
     Active Substance: FEXOFENADINE HYDROCHLORIDE
     Indication: Rash
     Dates: start: 20240523, end: 20240814
  15. SAHNE [Concomitant]
     Indication: Rash
     Dosage: DOSE UNKNOWN
     Dates: start: 20240620, end: 20240815
  16. GLYCOSAMINOGLYCANS [Concomitant]
     Active Substance: GLYCOSAMINOGLYCANS
     Indication: Dermatitis
     Dosage: DOSE UNKNOWN
     Dates: start: 20240620, end: 20240829
  17. GLYCOSAMINOGLYCANS [Concomitant]
     Active Substance: GLYCOSAMINOGLYCANS
     Indication: Rash
  18. EDOXABAN TOSYLATE [Concomitant]
     Active Substance: EDOXABAN TOSYLATE
     Indication: Prophylaxis
     Dates: start: 20240912
  19. LEVOTHYROXINE [Concomitant]
     Active Substance: LEVOTHYROXINE
     Indication: Hypothyroidism
     Dates: start: 20240717, end: 20241208
  20. LEVOTHYROXINE [Concomitant]
     Active Substance: LEVOTHYROXINE
     Dates: start: 20241209, end: 20250305
  21. LEVOTHYROXINE [Concomitant]
     Active Substance: LEVOTHYROXINE
     Dates: start: 20250306

REACTIONS (1)
  - Diarrhoea [Recovered/Resolved]

NARRATIVE: CASE EVENT DATE: 20240801
